FAERS Safety Report 10776024 (Version 3)
Quarter: 2015Q4

REPORT INFORMATION
  Report Type: Spontaneous
  Country: US (occurrence: US)
  Receive Date: 20150209
  Receipt Date: 20151019
  Transmission Date: 20160304
  Serious: Yes (Hospitalization, Other)
  Sender: FDA-Public Use
  Company Number: US-GLAXOSMITHKLINE-A1068713A

PATIENT
  Age: 29 Year
  Sex: Female

DRUGS (1)
  1. BENLYSTA [Suspect]
     Active Substance: BELIMUMAB
     Indication: SYSTEMIC LUPUS ERYTHEMATOSUS
     Dosage: 120 MG, Z
     Route: 042
     Dates: start: 201112

REACTIONS (8)
  - Headache [Unknown]
  - Malaise [Unknown]
  - Ear discomfort [Unknown]
  - Nephrolithiasis [Unknown]
  - Renal stone removal [Unknown]
  - Sinusitis [Unknown]
  - Oropharyngeal pain [Unknown]
  - Urinary tract infection [Unknown]

NARRATIVE: CASE EVENT DATE: 201403
